FAERS Safety Report 5837043-7 (Version None)
Quarter: 2008Q3

REPORT INFORMATION
  Report Type: 
  Country: None (occurrence: None)
  Receive Date: 20080807
  Receipt Date: 20080625
  Transmission Date: 20090109
  Serious: No
  Sender: FDA-Public Use
  Company Number: US-BRISTOL-MYERS SQUIBB COMPANY-14242002

PATIENT
  Age: 56 Year
  Sex: Female

DRUGS (2)
  1. GLUCOVANCE [Suspect]
     Dosage: 1 DOSAGE FORM = 5/500MG
     Dates: start: 20020101
  2. LISINOPRIL AND HYDROCHLOROTHIAZIDE [Concomitant]
     Dosage: 1 DOSAGE FORM = 20/12.5MG
     Dates: start: 20070101

REACTIONS (1)
  - WEIGHT INCREASED [None]
